FAERS Safety Report 24836627 (Version 1)
Quarter: 2025Q1

REPORT INFORMATION
  Report Type: Spontaneous
  Country: US (occurrence: None)
  Receive Date: 20250111
  Receipt Date: 20250111
  Transmission Date: 20250409
  Serious: Yes (Hospitalization)
  Sender: FDA-CTU
  Company Number: None

PATIENT
  Age: 23 Month
  Sex: Male
  Weight: 14.3 kg

DRUGS (2)
  1. CYCLOPHOSPHAMIDE [Suspect]
     Active Substance: CYCLOPHOSPHAMIDE
  2. TOPOTECAN [Suspect]
     Active Substance: TOPOTECAN HYDROCHLORIDE

REACTIONS (6)
  - Acute respiratory failure [None]
  - Haemothorax [None]
  - Tumour haemorrhage [None]
  - Abdominal distension [None]
  - Abdominal compartment syndrome [None]
  - Decreased appetite [None]

NARRATIVE: CASE EVENT DATE: 20240524
